FAERS Safety Report 15500489 (Version 6)
Quarter: 2019Q3

REPORT INFORMATION
  Report Type: Spontaneous
  Country: US (occurrence: US)
  Receive Date: 20181015
  Receipt Date: 20190815
  Transmission Date: 20191004
  Serious: Yes (Hospitalization, Other)
  Sender: FDA-Public Use
  Company Number: US-PFIZER INC-2018413521

PATIENT
  Age: 69 Year
  Sex: Female
  Weight: 82 kg

DRUGS (2)
  1. LYRICA [Suspect]
     Active Substance: PREGABALIN
     Indication: LUMBAR RADICULOPATHY
     Dosage: 150 MG, 2X/DAY (1 CAPSULE TWICE A DAY)
     Route: 048
  2. LYRICA [Suspect]
     Active Substance: PREGABALIN
     Indication: PAIN

REACTIONS (10)
  - Wound infection staphylococcal [Recovering/Resolving]
  - Gastric ulcer [Unknown]
  - Gait inability [Unknown]
  - Asthenia [Unknown]
  - Arthritis [Unknown]
  - Drug ineffective [Unknown]
  - Erythema [Unknown]
  - Inflammation [Unknown]
  - Scab [Not Recovered/Not Resolved]
  - Purulent discharge [Not Recovered/Not Resolved]

NARRATIVE: CASE EVENT DATE: 201809
